FAERS Safety Report 10910387 (Version 1)
Quarter: 2015Q1

REPORT INFORMATION
  Report Type: Spontaneous
  Country: US (occurrence: US)
  Receive Date: 20150312
  Receipt Date: 20150312
  Transmission Date: 20150721
  Serious: No
  Sender: FDA-Public Use
  Company Number: US-SA-2014SA124742

PATIENT
  Sex: Male

DRUGS (2)
  1. NASACORT ALLERGY 24HR [Suspect]
     Active Substance: TRIAMCINOLONE ACETONIDE
     Indication: RHINORRHOEA
     Dosage: 1 SPRAY IN EACH NOSTRIL
     Route: 045
     Dates: start: 20140907
  2. NASACORT ALLERGY 24HR [Suspect]
     Active Substance: TRIAMCINOLONE ACETONIDE
     Indication: RHINORRHOEA
     Dosage: 2 SPRAYS IN EACH NOSTRIL
     Route: 045
     Dates: start: 20140908

REACTIONS (2)
  - Feeling abnormal [Not Recovered/Not Resolved]
  - Drug ineffective [Unknown]
